FAERS Safety Report 20070915 (Version 1)
Quarter: 2021Q4

REPORT INFORMATION
  Report Type: Spontaneous
  Country: US (occurrence: US)
  Receive Date: 20211115
  Receipt Date: 20211115
  Transmission Date: 20220303
  Serious: No
  Sender: FDA-Public Use
  Company Number: US-IGSA-BIG0016571

PATIENT
  Age: 3 Year
  Sex: Male

DRUGS (5)
  1. HUMAN IMMUNOGLOBULIN G [Suspect]
     Active Substance: HUMAN IMMUNOGLOBULIN G
     Indication: Kawasaki^s disease
     Dosage: 60 GRAM, TOTAL
     Route: 042
  2. ASPIRIN [Concomitant]
     Active Substance: ASPIRIN
     Indication: Kawasaki^s disease
  3. ASPIRIN [Concomitant]
     Active Substance: ASPIRIN
     Indication: Kawasaki^s disease
     Dosage: 81 MILLIGRAM, QD
  4. MUPIROCIN [Concomitant]
     Active Substance: MUPIROCIN
     Indication: Kawasaki^s disease
     Dosage: UNK
  5. PREDNISOLONE [Concomitant]
     Active Substance: PREDNISOLONE
     Indication: Kawasaki^s disease
     Dosage: 1 MILLIGRAM/KILOGRAM, QD

REACTIONS (2)
  - Dermatitis psoriasiform [Recovered/Resolved]
  - Rash [Recovered/Resolved]
